FAERS Safety Report 8177114-6 (Version None)
Quarter: 2012Q1

REPORT INFORMATION
  Report Type: 
  Country: None (occurrence: None)
  Receive Date: 20120301
  Receipt Date: 20120224
  Transmission Date: 20120608
  Serious: Yes (Death)
  Sender: FDA-Public Use
  Company Number: US-GLAXOSMITHKLINE-A0967676A

PATIENT
  Age: 62 Year
  Sex: Female

DRUGS (4)
  1. ZINC SULFATE [Concomitant]
  2. TYKERB [Suspect]
     Indication: PRODUCT USED FOR UNKNOWN INDICATION
     Dosage: 1250MG PER DAY
     Route: 048
  3. COREG [Concomitant]
  4. NAVELBINE [Concomitant]

REACTIONS (1)
  - DEATH [None]
